FAERS Safety Report 6338959-8 (Version None)
Quarter: 2009Q3

REPORT INFORMATION
  Report Type: 
  Country: None (occurrence: None)
  Receive Date: 20090831
  Receipt Date: 20090610
  Transmission Date: 20100115
  Serious: Yes (Hospitalization)
  Sender: FDA-Public Use
  Company Number: KV200900645

PATIENT
  Sex: Male

DRUGS (3)
  1. METOPROLOL SUCCINATE [Suspect]
     Indication: ATRIAL FIBRILLATION
     Dosage: 50 MG, 1/2 TABLET BID, ORAL
     Route: 048
     Dates: end: 20090101
  2. CARTIA XT /00489701/ (DILTIAZEM) [Concomitant]
  3. COUMADIN [Concomitant]

REACTIONS (1)
  - TACHYCARDIA [None]
